FAERS Safety Report 24182637 (Version 1)
Quarter: 2024Q3

REPORT INFORMATION
  Report Type: Spontaneous
  Country: US (occurrence: US)
  Receive Date: 20240807
  Receipt Date: 20240807
  Transmission Date: 20241017
  Serious: Yes (Other)
  Sender: HETERO
  Company Number: US-AMAROX PHARMA-HET2024US02610

PATIENT
  Age: 1 Day
  Sex: Male

DRUGS (4)
  1. HYDROXYZINE [Suspect]
     Active Substance: HYDROXYZINE HYDROCHLORIDE
     Indication: Depression
     Dosage: UNK
     Route: 064
  2. HYDROXYZINE [Suspect]
     Active Substance: HYDROXYZINE HYDROCHLORIDE
     Indication: Post-traumatic stress disorder
  3. ESCITALOPRAM [Suspect]
     Active Substance: ESCITALOPRAM OXALATE
     Indication: Depression
     Dosage: UNK
     Route: 064
  4. ESCITALOPRAM [Suspect]
     Active Substance: ESCITALOPRAM OXALATE
     Indication: Post-traumatic stress disorder

REACTIONS (2)
  - Unresponsive to stimuli [Recovered/Resolved]
  - Foetal exposure during pregnancy [Unknown]
